FAERS Safety Report 20078471 (Version 2)
Quarter: 2021Q4

REPORT INFORMATION
  Report Type: Report from Study
  Country: ES (occurrence: ES)
  Receive Date: 20211117
  Receipt Date: 20211127
  Transmission Date: 20220303
  Serious: Yes (Hospitalization)
  Sender: FDA-Public Use
  Company Number: ES-ABBVIE-21K-144-4162284-00

PATIENT
  Age: 79 Year
  Sex: Male

DRUGS (2)
  1. CARBIDOPA\LEVODOPA [Suspect]
     Active Substance: CARBIDOPA\LEVODOPA
     Indication: Product used for unknown indication
     Route: 050
     Dates: start: 20180202, end: 20211101
  2. CARBIDOPA\LEVODOPA [Suspect]
     Active Substance: CARBIDOPA\LEVODOPA
     Route: 050
     Dates: start: 20211112

REACTIONS (9)
  - Renal failure [Not Recovered/Not Resolved]
  - Aphonia [Unknown]
  - Bedridden [Unknown]
  - Muscular weakness [Unknown]
  - Decubitus ulcer [Unknown]
  - Freezing phenomenon [Recovered/Resolved]
  - Drug ineffective [Unknown]
  - On and off phenomenon [Unknown]
  - Muscle rigidity [Unknown]

NARRATIVE: CASE EVENT DATE: 20211101
